FAERS Safety Report 7996029-7 (Version None)
Quarter: 2011Q4

REPORT INFORMATION
  Report Type: 
  Country: None (occurrence: None)
  Receive Date: 20111220
  Receipt Date: 20111212
  Transmission Date: 20120403
  Serious: Yes (Hospitalization)
  Sender: FDA-Public Use
  Company Number: PHEH2011US011534

PATIENT
  Sex: Female

DRUGS (9)
  1. NEORAL [Suspect]
     Dosage: 125 MG, QD
  2. NIFEDIPINE [Concomitant]
     Dosage: 60 MG, BID
  3. NEORAL [Suspect]
     Dosage: 150 MG, QD
  4. ADVAIR DISKUS 100/50 [Concomitant]
     Dosage: 100-50
  5. PREDNISONE TAB [Concomitant]
     Dosage: 10 MG, UNK
  6. POTASSIUM [Concomitant]
     Dosage: UNK UKN, UNK
  7. NIZATIDINE [Concomitant]
     Dosage: 150 MG, UNK
  8. PRAVASTATIN [Concomitant]
     Dosage: 40 MG, UNK
  9. MAGNESIUM OXIDE [Concomitant]
     Dosage: 400 MG, UNK

REACTIONS (1)
  - DIVERTICULITIS [None]
